FAERS Safety Report 8990052 (Version 3)
Quarter: 2014Q2

REPORT INFORMATION
  Report Type: Spontaneous
  Country: US (occurrence: US)
  Receive Date: 20121228
  Receipt Date: 20140522
  Transmission Date: 20141212
  Serious: Yes (Hospitalization)
  Sender: FDA-Public Use
  Company Number: US-B.I. PHARMACEUTICALS,INC./RIDGEFIELD-2012-BI-04339BP

PATIENT
  Sex: Female
  Weight: 78.93 kg

DRUGS (8)
  1. PRADAXA [Suspect]
     Indication: ANTICOAGULANT THERAPY
     Dosage: 300 MG
     Route: 048
     Dates: start: 20110716, end: 20111228
  2. ASPIRIN [Concomitant]
     Dosage: 81 MG
     Route: 048
  3. FISH OIL [Concomitant]
     Dosage: 2000 MG
     Route: 048
  4. PLAVIX [Concomitant]
     Route: 065
  5. LASIX [Concomitant]
     Route: 065
  6. LOPRESSOR [Concomitant]
     Dosage: 50 MG
     Route: 048
  7. LODINE [Concomitant]
     Dosage: 800 MG
     Route: 048
  8. METOPROLOL ERT [Concomitant]
     Dosage: 75 MG
     Route: 048

REACTIONS (2)
  - Angina unstable [Unknown]
  - Iron deficiency anaemia [Unknown]
